FAERS Safety Report 7158627-2 (Version None)
Quarter: 2010Q4

REPORT INFORMATION
  Report Type: 
  Country: None (occurrence: None)
  Receive Date: 20101214
  Receipt Date: 20100616
  Transmission Date: 20110411
  Serious: No
  Sender: FDA-Public Use
  Company Number: US-ASTRAZENECA-2010SE28186

PATIENT
  Age: 79 Year
  Sex: Female

DRUGS (3)
  1. CRESTOR [Suspect]
     Indication: BLOOD CHOLESTEROL INCREASED
     Route: 048
     Dates: start: 20090101, end: 20100611
  2. PROTONIC [Concomitant]
  3. ALEVE (CAPLET) [Concomitant]

REACTIONS (2)
  - COELIAC DISEASE [None]
  - MALAISE [None]
